APPROVED DRUG PRODUCT: AMIODARONE HYDROCHLORIDE
Active Ingredient: AMIODARONE HYDROCHLORIDE
Strength: 50MG/ML
Dosage Form/Route: INJECTABLE;INJECTION
Application: A218253 | Product #001 | TE Code: AP
Applicant: ZHEJIANG POLY PHARM CO LTD
Approved: Sep 11, 2024 | RLD: No | RS: No | Type: RX